FAERS Safety Report 8530799 (Version 3)
Quarter: 2013Q2

REPORT INFORMATION
  Report Type: Spontaneous
  Country: US (occurrence: US)
  Receive Date: 20120425
  Receipt Date: 20130614
  Transmission Date: 20140414
  Serious: No
  Sender: FDA-Public Use
  Company Number: US-B.I. PHARMACEUTICALS,INC./RIDGEFIELD-2012-BP-07431BP

PATIENT
  Age: 67 Year
  Sex: Male
  Weight: 70.76 kg

DRUGS (8)
  1. TRADJENTA [Suspect]
     Indication: DIABETES MELLITUS
     Dosage: 5 MG
     Dates: end: 20111213
  2. COQ10 [Concomitant]
  3. ASPIRIN [Concomitant]
  4. NIACIN [Concomitant]
  5. CRESTOR [Concomitant]
  6. VITAMIN B COMPLEX [Concomitant]
  7. NEXIUM [Concomitant]
  8. ZANTAC [Concomitant]

REACTIONS (1)
  - Pancreatitis [Recovered/Resolved]
